FAERS Safety Report 7071936-0 (Version None)
Quarter: 2010Q4

REPORT INFORMATION
  Report Type: 
  Country: None (occurrence: None)
  Receive Date: 20101028
  Receipt Date: 20101028
  Transmission Date: 20110411
  Serious: Yes (Other)
  Sender: FDA-Public Use
  Company Number: None

PATIENT
  Sex: Male
  Weight: 7.2576 kg

DRUGS (1)
  1. TEETHING TABLETS 125 TABLETS HYLAND'S HOMEOPATHIC [Suspect]
     Indication: TEETHING
     Dosage: 2 TO 3 TABLETS EVERY 4 HOURS
     Dates: start: 20100815, end: 20101026

REACTIONS (7)
  - AGITATION [None]
  - CONSTIPATION [None]
  - DYSPNOEA [None]
  - FLUSHING [None]
  - LETHARGY [None]
  - PRODUCT QUALITY ISSUE [None]
  - RASH [None]
